FAERS Safety Report 16498435 (Version 2)
Quarter: 2019Q3

REPORT INFORMATION
  Report Type: Spontaneous
  Country: SE (occurrence: SE)
  Receive Date: 20190629
  Receipt Date: 20190708
  Transmission Date: 20191004
  Serious: Yes (Hospitalization, Other)
  Sender: FDA-Public Use
  Company Number: SE-AUROBINDO-AUR-APL-2019-036695

PATIENT

DRUGS (2)
  1. SERTRALINE [Suspect]
     Active Substance: SERTRALINE HYDROCHLORIDE
     Indication: PRODUCT USED FOR UNKNOWN INDICATION
     Dosage: 5 GRAM
     Route: 048
     Dates: start: 20190404, end: 20190404
  2. LERGIGAN (PROMETHAZINE HYDROCHLORIDE) [Suspect]
     Active Substance: PROMETHAZINE HYDROCHLORIDE
     Indication: PRODUCT USED FOR UNKNOWN INDICATION
     Dosage: 2.5 GRAM
     Route: 048
     Dates: start: 20190404, end: 20190404

REACTIONS (7)
  - Intentional overdose [Unknown]
  - Intentional self-injury [Unknown]
  - Restlessness [Unknown]
  - Vomiting [Unknown]
  - Hallucination [Unknown]
  - Anxiety [Unknown]
  - Akathisia [Unknown]

NARRATIVE: CASE EVENT DATE: 201904
